FAERS Safety Report 5483795-8 (Version None)
Quarter: 2007Q4

REPORT INFORMATION
  Report Type: 
  Country: None (occurrence: None)
  Receive Date: 20071012
  Receipt Date: 20071005
  Transmission Date: 20080405
  Serious: Yes (Hospitalization)
  Sender: FDA-Public Use
  Company Number: B0489314A

PATIENT
  Age: 51 Year
  Sex: Male

DRUGS (3)
  1. ZYBAN [Suspect]
     Dosage: 150MG TWICE PER DAY
     Route: 065
     Dates: start: 20051227
  2. ABILIFY [Concomitant]
  3. CHLORPROMAZINE HYDROCHLORIDE [Concomitant]

REACTIONS (2)
  - AGGRESSION [None]
  - PSYCHOTIC DISORDER [None]
